FAERS Safety Report 20352300 (Version 1)
Quarter: 2022Q1

REPORT INFORMATION
  Report Type: Spontaneous
  Country: US (occurrence: US)
  Receive Date: 20220119
  Receipt Date: 20220119
  Transmission Date: 20220423
  Serious: Yes (Other)
  Sender: FDA-Public Use
  Company Number: US-PFIZER INC-202200034540

PATIENT
  Age: 76 Year
  Sex: Female

DRUGS (7)
  1. CYTOMEL [Suspect]
     Active Substance: LIOTHYRONINE SODIUM
     Indication: Thyroid stimulating hormone deficiency
     Dosage: 5 UG, 1X/DAY
  2. CYTOMEL [Suspect]
     Active Substance: LIOTHYRONINE SODIUM
     Indication: Hypothalamo-pituitary disorder
  3. PREDNISONE [Concomitant]
     Active Substance: PREDNISONE
     Indication: Hypersensitivity
     Dosage: 1 MG, DAILY
  4. ZESTRIL [Concomitant]
     Active Substance: LISINOPRIL
     Indication: Blood pressure increased
  5. ASPIRIN [Concomitant]
     Active Substance: ASPIRIN
  6. LASIX [Concomitant]
     Active Substance: FUROSEMIDE
  7. TAGAMET [Concomitant]
     Active Substance: CIMETIDINE

REACTIONS (7)
  - Hyperthyroidism [Unknown]
  - Rash pruritic [Recovered/Resolved]
  - Heart rate irregular [Unknown]
  - Heart rate increased [Unknown]
  - Skin discolouration [Unknown]
  - Insomnia [Unknown]
  - Fatigue [Unknown]
